APPROVED DRUG PRODUCT: METAXALONE
Active Ingredient: METAXALONE
Strength: 800MG
Dosage Form/Route: TABLET;ORAL
Application: A203695 | Product #001 | TE Code: AB
Applicant: ACTAVIS LABORATORIES FL INC
Approved: Jun 15, 2017 | RLD: No | RS: No | Type: RX